FAERS Safety Report 25579143 (Version 1)
Quarter: 2025Q3

REPORT INFORMATION
  Report Type: Spontaneous
  Country: CA (occurrence: CA)
  Receive Date: 20250718
  Receipt Date: 20250718
  Transmission Date: 20251020
  Serious: Yes (Hospitalization, Other)
  Sender: GLAXOSMITHKLINE
  Company Number: CA-GSK-CA2025AMR090383

PATIENT
  Age: 28 Year
  Sex: Female

DRUGS (13)
  1. LAMOTRIGINE [Suspect]
     Active Substance: LAMOTRIGINE
     Indication: Product used for unknown indication
     Route: 065
  2. CLOBAZAM [Suspect]
     Active Substance: CLOBAZAM
     Indication: Product used for unknown indication
     Dosage: 20 MG, QD
     Route: 065
  3. CLOBAZAM [Suspect]
     Active Substance: CLOBAZAM
     Route: 065
  4. LACOSAMIDE [Suspect]
     Active Substance: LACOSAMIDE
     Indication: Product used for unknown indication
     Route: 065
  5. PHENYTOIN [Suspect]
     Active Substance: PHENYTOIN
     Indication: Product used for unknown indication
     Route: 065
  6. XCOPRI [Suspect]
     Active Substance: CENOBAMATE
     Indication: Partial seizures
     Dosage: 100 MG, QD
  7. XCOPRI [Suspect]
     Active Substance: CENOBAMATE
     Dosage: 50 MG, QD
  8. XCOPRI [Suspect]
     Active Substance: CENOBAMATE
     Dosage: 25 MG, QD
  9. XCOPRI [Suspect]
     Active Substance: CENOBAMATE
     Dosage: 12.5 MG, QD
  10. XCOPRI [Suspect]
     Active Substance: CENOBAMATE
     Dosage: 150 MG, QD
  11. IRON [Concomitant]
     Active Substance: IRON
     Indication: Product used for unknown indication
  12. LORAZEPAM [Concomitant]
     Active Substance: LORAZEPAM
     Indication: Product used for unknown indication
     Route: 065
  13. MAGNESIUM [Concomitant]
     Active Substance: MAGNESIUM
     Indication: Product used for unknown indication

REACTIONS (19)
  - Asthenia [Unknown]
  - Coma scale abnormal [Unknown]
  - Drug dose titration not performed [Unknown]
  - Eating disorder [Unknown]
  - Fatigue [Unknown]
  - Generalised tonic-clonic seizure [Unknown]
  - Hypersomnia [Unknown]
  - Hypokinesia [Unknown]
  - Intentional dose omission [Unknown]
  - Partial seizures [Unknown]
  - Personality change [Unknown]
  - Petit mal epilepsy [Unknown]
  - Product distribution issue [Unknown]
  - Product communication issue [Unknown]
  - Seizure [Unknown]
  - Somnolence [Unknown]
  - Status epilepticus [Unknown]
  - Therapy interrupted [Unknown]
  - Urinary retention [Unknown]
